FAERS Safety Report 18847365 (Version 2)
Quarter: 2021Q2

REPORT INFORMATION
  Report Type: Report from Study
  Country: US (occurrence: US)
  Receive Date: 20210203
  Receipt Date: 20210427
  Transmission Date: 20210717
  Serious: Yes (Hospitalization, Other)
  Sender: FDA-Public Use
  Company Number: US-EXELIXIS-CABO-20033641

PATIENT
  Age: 64 Year
  Sex: Female

DRUGS (2)
  1. CABOMETYX [Suspect]
     Active Substance: CABOZANTINIB S-MALATE
     Indication: RENAL CANCER
     Dosage: 60 MG, QD
     Route: 048
     Dates: start: 20200917, end: 202102
  2. CABOMETYX [Suspect]
     Active Substance: CABOZANTINIB S-MALATE
     Dosage: 60 MG, QD
     Route: 048

REACTIONS (7)
  - Decreased appetite [Unknown]
  - Gingival pain [Recovered/Resolved]
  - Dehydration [Unknown]
  - Nausea [Recovered/Resolved]
  - Seizure [Unknown]
  - Diarrhoea [Unknown]
  - Brain oedema [Unknown]

NARRATIVE: CASE EVENT DATE: 202103
